FAERS Safety Report 7795434-1 (Version None)
Quarter: 2011Q4

REPORT INFORMATION
  Report Type: 
  Country: None (occurrence: None)
  Receive Date: 20111004
  Receipt Date: 20110930
  Transmission Date: 20120403
  Serious: Yes (Other)
  Sender: FDA-Public Use
  Company Number: US-AMGEN-USASP2010004938

PATIENT
  Age: 53 Year
  Sex: Male
  Weight: 53.968 kg

DRUGS (3)
  1. CORTICOSTEROIDS [Concomitant]
     Indication: IDIOPATHIC THROMBOCYTOPENIC PURPURA
     Dosage: UNK
     Dates: start: 20100420
  2. IMMUNOGLOBULINS [Concomitant]
     Indication: IDIOPATHIC THROMBOCYTOPENIC PURPURA
  3. NPLATE [Suspect]
     Indication: IDIOPATHIC THROMBOCYTOPENIC PURPURA
     Dosage: 65 MUG, UNK
     Route: 058
     Dates: start: 20100514, end: 20110118

REACTIONS (5)
  - LEUKOCYTOSIS [None]
  - THERAPEUTIC RESPONSE DECREASED [None]
  - BIOPSY BONE MARROW ABNORMAL [None]
  - LEUKAEMOID REACTION [None]
  - HAEMATOLOGICAL MALIGNANCY [None]
